FAERS Safety Report 22095545 (Version 2)
Quarter: 2023Q1

REPORT INFORMATION
  Report Type: Spontaneous
  Country: ZA (occurrence: ZA)
  Receive Date: 20230314
  Receipt Date: 20230323
  Transmission Date: 20230418
  Serious: Yes (Other)
  Sender: FDA-Public Use
  Company Number: ZA-PFIZER INC-PV202300046019

PATIENT
  Age: 73 Year

DRUGS (2)
  1. XELJANZ [Suspect]
     Active Substance: TOFACITINIB CITRATE
     Dosage: TAKE 2 TABLET(S) TWICE DAILY ORALLY X 8 WEEKS, INDUCTION PHASE
     Route: 048
  2. XELJANZ [Suspect]
     Active Substance: TOFACITINIB CITRATE
     Dosage: TAKE 1 TABLET(S) TWICE DAILY ORALLY
     Route: 048

REACTIONS (1)
  - Colitis ulcerative [Unknown]
